FAERS Safety Report 17980699 (Version 1)
Quarter: 2020Q3

REPORT INFORMATION
  Report Type: Spontaneous
  Country: US (occurrence: US)
  Receive Date: 20200704
  Receipt Date: 20200704
  Transmission Date: 20201103
  Serious: Yes (Hospitalization)
  Sender: FDA-Public Use
  Company Number: US-EMCURE PHARMACEUTICALS LTD-2020-EPL-000826

PATIENT
  Age: 63 Year
  Sex: Male

DRUGS (19)
  1. FLUCONAZOLE. [Concomitant]
     Active Substance: FLUCONAZOLE
     Indication: ANTIFUNGAL PROPHYLAXIS
     Dosage: UNK
     Dates: start: 201806
  2. CEFEPIME [Concomitant]
     Active Substance: CEFEPIME HYDROCHLORIDE
     Indication: PYREXIA
  3. VANCOMYCIN HYDROCHLORIDE. [Suspect]
     Active Substance: VANCOMYCIN HYDROCHLORIDE
     Indication: PYREXIA
  4. MICAFUNGIN. [Concomitant]
     Active Substance: MICAFUNGIN SODIUM
     Indication: DIARRHOEA
     Dosage: UNK
     Dates: start: 2018
  5. MEROPENEM. [Concomitant]
     Active Substance: MEROPENEM
     Indication: DIARRHOEA
     Dosage: UNK
     Dates: start: 2018
  6. MEROPENEM. [Concomitant]
     Active Substance: MEROPENEM
     Indication: CELLULITIS
  7. LEVOFLOXACIN. [Concomitant]
     Active Substance: LEVOFLOXACIN
     Indication: ANTIBIOTIC PROPHYLAXIS
     Dosage: UNK
     Dates: start: 201806
  8. AMBISOME [Concomitant]
     Active Substance: AMPHOTERICIN B
     Indication: PYREXIA
  9. CEFEPIME [Concomitant]
     Active Substance: CEFEPIME HYDROCHLORIDE
     Indication: CELLULITIS
  10. MEROPENEM. [Concomitant]
     Active Substance: MEROPENEM
     Indication: PYREXIA
  11. CYTARABINE. [Concomitant]
     Active Substance: CYTARABINE
     Indication: ACUTE MYELOID LEUKAEMIA
     Dosage: UNK
     Dates: start: 201806
  12. AMBISOME [Concomitant]
     Active Substance: AMPHOTERICIN B
     Indication: DIARRHOEA
  13. VANCOMYCIN HYDROCHLORIDE. [Suspect]
     Active Substance: VANCOMYCIN HYDROCHLORIDE
     Indication: CELLULITIS
  14. MICAFUNGIN. [Concomitant]
     Active Substance: MICAFUNGIN SODIUM
     Indication: CELLULITIS
  15. AMBISOME [Concomitant]
     Active Substance: AMPHOTERICIN B
     Indication: CELLULITIS
  16. VANCOMYCIN HYDROCHLORIDE. [Suspect]
     Active Substance: VANCOMYCIN HYDROCHLORIDE
     Indication: DIARRHOEA
     Dosage: UNK
  17. CLOFARABINE. [Concomitant]
     Active Substance: CLOFARABINE
     Indication: ACUTE MYELOID LEUKAEMIA
     Dosage: UNK
     Dates: start: 201806
  18. CEFEPIME [Concomitant]
     Active Substance: CEFEPIME HYDROCHLORIDE
     Indication: DIARRHOEA
     Dosage: UNK
     Dates: start: 2018
  19. MICAFUNGIN. [Concomitant]
     Active Substance: MICAFUNGIN SODIUM
     Indication: PYREXIA

REACTIONS (1)
  - Drug resistance [Unknown]
